FAERS Safety Report 9500245 (Version 1)
Quarter: 2013Q1

REPORT INFORMATION
  Report Type: Spontaneous
  Country: US (occurrence: None)
  Receive Date: 20130129
  Receipt Date: 20130129
  Transmission Date: 20140127
  Serious: Yes (Other)
  Sender: FDA-Public Use
  Company Number: 1000039807

PATIENT
  Age: 67 Year
  Sex: Male

DRUGS (7)
  1. BYSTOLIC [Suspect]
     Indication: HEART RATE INCREASED
     Dosage: 5 MG (5 MG, 1 IN 1 D), ORAL
     Route: 048
     Dates: end: 201204
  2. BYSTOLIC [Suspect]
     Indication: HEART RATE INCREASED
     Dosage: 5 MG BID (5 MG, 2 IN 1 D), ORAL
     Route: 048
     Dates: start: 201204, end: 201210
  3. NORVASC (AMLODIPINE BESILATE) [Concomitant]
  4. METFORMIN (METFORMIN) (METFORMIN) [Concomitant]
  5. CRESTOR (ROSUVASTATIN CALCIUM) (ROSUVASTATIN CALCIUM) [Concomitant]
  6. CLIPIDOGREL (CLOPIDOGREL) (CLOPIDOGREL) [Concomitant]
  7. HEARTBURN MIDICATIOIN NOS (HEARTBURN MEDICATION NOS) (HEARTBURN MEDICATION NOS) [Concomitant]

REACTIONS (1)
  - Heart rate decreased [None]
